FAERS Safety Report 13575713 (Version 2)
Quarter: 2017Q2

REPORT INFORMATION
  Report Type: Report from Study
  Country: US (occurrence: US)
  Receive Date: 20170524
  Receipt Date: 20170626
  Transmission Date: 20170830
  Serious: No
  Sender: FDA-Public Use
  Company Number: PHEH2017US015527

PATIENT
  Sex: Male

DRUGS (3)
  1. ILARIS [Suspect]
     Active Substance: CANAKINUMAB
     Indication: PRODUCT USED FOR UNKNOWN INDICATION
     Dosage: UNK
     Route: 065
  2. ILARIS [Suspect]
     Active Substance: CANAKINUMAB
     Dosage: FOR EVERY 4 WEEKS
     Route: 065
     Dates: start: 20170518
  3. ILARIS [Suspect]
     Active Substance: CANAKINUMAB
     Dosage: FOR EVERY 4 WEEKS
     Route: 065
     Dates: start: 20170407

REACTIONS (1)
  - Inappropriate schedule of drug administration [Unknown]
